FAERS Safety Report 23040071 (Version 1)
Quarter: 2023Q4

REPORT INFORMATION
  Report Type: Spontaneous
  Country: US (occurrence: US)
  Receive Date: 20231006
  Receipt Date: 20231006
  Transmission Date: 20240109
  Serious: Yes (Death, Other)
  Sender: FDA-Public Use
  Company Number: US-SA-2023SA188651

PATIENT
  Age: 55 Year
  Sex: Female

DRUGS (4)
  1. LEFLUNOMIDE [Suspect]
     Active Substance: LEFLUNOMIDE
     Indication: Rheumatoid arthritis
     Dosage: UNK
  2. PREDNISONE [Suspect]
     Active Substance: PREDNISONE
     Indication: Rheumatoid arthritis
     Dosage: 3 MG, QD
  3. METHOTREXATE [Suspect]
     Active Substance: METHOTREXATE
     Indication: Rheumatoid arthritis
     Dosage: 20 MG, QW
  4. INFLIXIMAB [Suspect]
     Active Substance: INFLIXIMAB
     Indication: Rheumatoid arthritis
     Dosage: UNK

REACTIONS (10)
  - Histoplasmosis disseminated [Fatal]
  - Arthralgia [Fatal]
  - Disseminated intravascular coagulation [Fatal]
  - Hypotension [Fatal]
  - Tachycardia [Fatal]
  - Tachypnoea [Fatal]
  - Multiple organ dysfunction syndrome [Fatal]
  - Hypertransaminasaemia [Fatal]
  - Thrombocytopenia [Fatal]
  - Shock [Fatal]
